FAERS Safety Report 8237685-8 (Version None)
Quarter: 2012Q1

REPORT INFORMATION
  Report Type: 
  Country: None (occurrence: None)
  Receive Date: 20120327
  Receipt Date: 20120321
  Transmission Date: 20120608
  Serious: Yes (Death)
  Sender: FDA-Public Use
  Company Number: US-ACTELION-A-NJ2012-62732

PATIENT

DRUGS (1)
  1. VENTAVIS [Suspect]
     Indication: PULMONARY ARTERIAL HYPERTENSION
     Dosage: 6 TIMES DAILY
     Route: 055
     Dates: start: 20120209, end: 20120223

REACTIONS (2)
  - RIGHT VENTRICULAR FAILURE [None]
  - PULMONARY HYPERTENSION [None]
